FAERS Safety Report 5345505-4 (Version None)
Quarter: 2007Q2

REPORT INFORMATION
  Report Type: 
  Country: None (occurrence: None)
  Receive Date: 20070605
  Receipt Date: 20070525
  Transmission Date: 20071010
  Serious: Yes (Death)
  Sender: FDA-Public Use
  Company Number: US-BAXTER-2007BH004833

PATIENT

DRUGS (6)
  1. DEXAMETHASONE 0.5MG TAB [Suspect]
     Indication: NON-HODGKIN'S LYMPHOMA
     Dosage: DOSE UNIT:UNKNOWN
     Route: 065
  2. VINCRISTINE SULFATE [Suspect]
     Indication: NON-HODGKIN'S LYMPHOMA
     Dosage: DOSE UNIT:UNKNOWN
     Route: 065
  3. METHOTREXATE [Suspect]
     Indication: NON-HODGKIN'S LYMPHOMA
     Dosage: DOSE UNIT:UNKNOWN
     Route: 065
  4. PEG-ASPARAGINASE [Suspect]
     Indication: NON-HODGKIN'S LYMPHOMA
     Dosage: DOSE UNIT:UNKNOWN
     Route: 065
  5. IDARUBICIN HCL [Suspect]
     Indication: NON-HODGKIN'S LYMPHOMA
     Dosage: DOSE UNIT:UNKNOWN
     Route: 065
  6. CYTARABINE [Suspect]
     Indication: NON-HODGKIN'S LYMPHOMA
     Dosage: DOSE UNIT:UNKNOWN
     Route: 065

REACTIONS (1)
  - INFECTION [None]
